FAERS Safety Report 7011374-X (Version None)
Quarter: 2010Q3

REPORT INFORMATION
  Report Type: 
  Country: None (occurrence: None)
  Receive Date: 20100923
  Receipt Date: 20090511
  Transmission Date: 20110219
  Serious: Yes (Hospitalization)
  Sender: FDA-Public Use
  Company Number: US-WYE-H07554609

PATIENT
  Sex: Female
  Weight: 62.2 kg

DRUGS (2)
  1. PREMARIN [Suspect]
     Indication: HOT FLUSH
     Route: 048
     Dates: start: 20010905, end: 20090103
  2. LOTENSIN [Concomitant]
     Indication: HYPERTENSION
     Dosage: 40 MG DAILY
     Route: 065

REACTIONS (1)
  - CEREBROVASCULAR ACCIDENT [None]
